FAERS Safety Report 11021515 (Version 3)
Quarter: 2015Q3

REPORT INFORMATION
  Report Type: Report from Study
  Country: US (occurrence: US)
  Receive Date: 20150413
  Receipt Date: 20150807
  Transmission Date: 20151125
  Serious: Yes (Hospitalization)
  Sender: FDA-Public Use
  Company Number: US-EISAI MEDICAL RESEARCH-EC-2015-004932

PATIENT
  Age: 70 Year
  Sex: Male
  Weight: 88.6 kg

DRUGS (20)
  1. VITAMIN B12 [Concomitant]
     Active Substance: CYANOCOBALAMIN
     Route: 048
     Dates: start: 201402
  2. ASPIRIN. [Concomitant]
     Active Substance: ASPIRIN
     Route: 048
     Dates: start: 201401
  3. METFORMIN [Concomitant]
     Active Substance: METFORMIN HYDROCHLORIDE
     Route: 048
     Dates: start: 20140515
  4. METOPROLOL [Concomitant]
     Active Substance: METOPROLOL
     Route: 048
     Dates: start: 20140515
  5. PRAVASTATIN [Concomitant]
     Active Substance: PRAVASTATIN\PRAVASTATIN SODIUM
     Route: 048
     Dates: start: 201308
  6. GLIPIZIDE. [Concomitant]
     Active Substance: GLIPIZIDE
  7. OMEPRAZOLE. [Concomitant]
     Active Substance: OMEPRAZOLE
     Route: 048
     Dates: start: 201308
  8. REGULAR INSULIN [Concomitant]
     Active Substance: INSULIN NOS
  9. MULTIVITAMIN WITH MINERALS [Concomitant]
     Active Substance: MINERALS\VITAMINS
  10. BENZONATATE. [Concomitant]
     Active Substance: BENZONATATE
  11. LORCASERIN [Suspect]
     Active Substance: LORCASERIN HYDROCHLORIDE
     Route: 048
     Dates: start: 20150115, end: 20150311
  12. VITAMIN D [Concomitant]
     Active Substance: CHOLECALCIFEROL
     Route: 048
     Dates: start: 20141022
  13. TAMSULOSIN [Concomitant]
     Active Substance: TAMSULOSIN
     Route: 048
     Dates: start: 20130830
  14. PRESERVISION [Concomitant]
     Active Substance: MINERALS\VITAMINS
  15. ELIQUIS [Concomitant]
     Active Substance: APIXABAN
  16. ATORVASTATIN [Concomitant]
     Active Substance: ATORVASTATIN
  17. TIKOSYN [Concomitant]
     Active Substance: DOFETILIDE
  18. PRESERVISION [Concomitant]
     Active Substance: MINERALS\VITAMINS
     Route: 048
     Dates: start: 2010
  19. NITROSTAT [Concomitant]
     Active Substance: NITROGLYCERIN
     Route: 048
     Dates: start: 20140107
  20. LORCASERIN [Suspect]
     Active Substance: LORCASERIN HYDROCHLORIDE
     Indication: WEIGHT CONTROL
     Route: 048
     Dates: start: 20141021, end: 20141113

REACTIONS (4)
  - Angina unstable [Recovered/Resolved]
  - Transient ischaemic attack [Recovered/Resolved]
  - Microscopic polyangiitis [Not Recovered/Not Resolved]
  - Chronic obstructive pulmonary disease [Recovered/Resolved]

NARRATIVE: CASE EVENT DATE: 20150312
